FAERS Safety Report 8841033 (Version 8)
Quarter: 2015Q2

REPORT INFORMATION
  Report Type: Spontaneous
  Country: US (occurrence: US)
  Receive Date: 20121015
  Receipt Date: 20150623
  Transmission Date: 20150821
  Serious: Yes (Life-Threatening, Hospitalization, Other)
  Sender: FDA-Public Use
  Company Number: US-ELI_LILLY_AND_COMPANY-US201210002325

PATIENT
  Age: 11 Year

DRUGS (1)
  1. PROZAC [Suspect]
     Active Substance: FLUOXETINE HYDROCHLORIDE
     Indication: DEPRESSION
     Dosage: 1 DF, UNKNOWN
     Route: 064

REACTIONS (12)
  - Autism [Unknown]
  - Encopresis [Unknown]
  - Ventricular extrasystoles [Unknown]
  - Conduction disorder [Unknown]
  - Attention deficit/hyperactivity disorder [Unknown]
  - Asperger^s disorder [Unknown]
  - Respiratory distress [Unknown]
  - Foetal exposure during pregnancy [Recovered/Resolved]
  - Supraventricular extrasystoles [Recovered/Resolved]
  - Impaired gastric emptying [Unknown]
  - Electrocardiogram QT prolonged [Unknown]
  - Meconium in amniotic fluid [Unknown]

NARRATIVE: CASE EVENT DATE: 20101022
